FAERS Safety Report 7324576-X (Version None)
Quarter: 2011Q1

REPORT INFORMATION
  Report Type: 
  Country: None (occurrence: None)
  Receive Date: 20110301
  Receipt Date: 20110223
  Transmission Date: 20110831
  Serious: Yes (Other)
  Sender: FDA-Public Use
  Company Number: US-PFIZER INC-2011039905

PATIENT
  Sex: Female
  Weight: 74.8 kg

DRUGS (3)
  1. LYRICA [Suspect]
     Indication: FIBROMYALGIA
     Dosage: 25 MG, 1X/DAY
     Route: 048
  2. LYRICA [Suspect]
     Dosage: 75 MG DAILY
  3. NORCO [Concomitant]
     Dosage: UNK

REACTIONS (5)
  - PAIN [None]
  - JOINT SWELLING [None]
  - SKIN EXFOLIATION [None]
  - DRY SKIN [None]
  - ARTHRITIS [None]
